FAERS Safety Report 26172927 (Version 1)
Quarter: 2025Q4

REPORT INFORMATION
  Report Type: Spontaneous
  Country: IR (occurrence: IR)
  Receive Date: 20251218
  Receipt Date: 20251218
  Transmission Date: 20260117
  Serious: Yes (Death, Hospitalization)
  Sender: ROCHE
  Company Number: IR-ROCHE-10000459051

PATIENT
  Age: 23 Year
  Sex: Male

DRUGS (1)
  1. HEMLIBRA [Suspect]
     Active Substance: EMICIZUMAB-KXWH
     Indication: Haemophilia

REACTIONS (5)
  - Sepsis [Fatal]
  - Road traffic accident [Fatal]
  - Limb fracture [Unknown]
  - Disseminated intravascular coagulation [Fatal]
  - Fracture [Unknown]
